FAERS Safety Report 5755355-2 (Version None)
Quarter: 2008Q2

REPORT INFORMATION
  Report Type: 
  Country: None (occurrence: None)
  Receive Date: 20080529
  Receipt Date: 20080529
  Transmission Date: 20081010
  Serious: Yes (Other)
  Sender: FDA-Public Use
  Company Number: None

PATIENT
  Age: 46 Year
  Sex: Female
  Weight: 56.6996 kg

DRUGS (2)
  1. CHANTIX [Suspect]
     Indication: SMOKING CESSATION THERAPY
     Dosage: ONE WHITE PILL DAILY PO;  ONE BLUE PILL DAILY PO
     Route: 048
     Dates: start: 20070721, end: 20070728
  2. CHANTIX [Suspect]
     Indication: SMOKING CESSATION THERAPY
     Dosage: ONE WHITE PILL DAILY PO;  ONE BLUE PILL DAILY PO
     Route: 048
     Dates: start: 20070729, end: 20071121

REACTIONS (15)
  - ABDOMINAL DISTENSION [None]
  - AGITATION [None]
  - ANGER [None]
  - CONFUSIONAL STATE [None]
  - DEPRESSED MOOD [None]
  - DIARRHOEA [None]
  - DISTURBANCE IN ATTENTION [None]
  - DRY MOUTH [None]
  - FEELING ABNORMAL [None]
  - INSOMNIA [None]
  - IRRITABILITY [None]
  - MENTAL DISORDER [None]
  - MOOD ALTERED [None]
  - SUICIDAL IDEATION [None]
  - WEIGHT INCREASED [None]
